FAERS Safety Report 6329993-2 (Version None)
Quarter: 2009Q3

REPORT INFORMATION
  Report Type: 
  Country: None (occurrence: None)
  Receive Date: 20090825
  Receipt Date: 20090814
  Transmission Date: 20100115
  Serious: Yes (Hospitalization)
  Sender: FDA-Public Use
  Company Number: A-CH2009-26893

PATIENT
  Age: 67 Year
  Sex: Female
  Weight: 64.2 kg

DRUGS (8)
  1. TRACLEER [Suspect]
     Indication: PULMONARY ARTERIAL HYPERTENSION
     Dosage: 125 MG, OD, ORAL; 62.5 MG, BID, ORAL
     Route: 048
     Dates: start: 20050404, end: 20050530
  2. TRACLEER [Suspect]
     Indication: PULMONARY ARTERIAL HYPERTENSION
     Dosage: 125 MG, OD, ORAL; 62.5 MG, BID, ORAL
     Route: 048
     Dates: start: 20050531, end: 20090806
  3. FUROSEMIDE [Concomitant]
  4. MAGNESIUM SULFATE [Concomitant]
  5. POTASSIUM CHLORIDE [Concomitant]
  6. MAXOLON [Concomitant]
  7. PANADEINE (PARACETAMOL, CODEINE PHOSPHATE) [Concomitant]
  8. SPIRIVA [Concomitant]

REACTIONS (15)
  - ALANINE AMINOTRANSFERASE INCREASED [None]
  - BLOOD BILIRUBIN INCREASED [None]
  - BLOOD CREATININE INCREASED [None]
  - DEHYDRATION [None]
  - FATIGUE [None]
  - GAMMA-GLUTAMYLTRANSFERASE INCREASED [None]
  - HEPATOTOXICITY [None]
  - HYPOKALAEMIA [None]
  - LIVER DISORDER [None]
  - MUSCULOSKELETAL DISCOMFORT [None]
  - NAUSEA [None]
  - PRURITUS [None]
  - URINE OUTPUT DECREASED [None]
  - VOMITING [None]
  - WEIGHT INCREASED [None]
